FAERS Safety Report 6128677-3 (Version None)
Quarter: 2009Q1

REPORT INFORMATION
  Report Type: 
  Country: None (occurrence: None)
  Receive Date: 20090323
  Receipt Date: 20090311
  Transmission Date: 20090719
  Serious: Yes (Other)
  Sender: FDA-Public Use
  Company Number: AU-PFIZER INC-2009182911

PATIENT

DRUGS (1)
  1. LYRICA [Suspect]
     Dosage: 300 MG

REACTIONS (1)
  - RENAL IMPAIRMENT [None]
